FAERS Safety Report 13080212 (Version 1)
Quarter: 2017Q1

REPORT INFORMATION
  Report Type: Spontaneous
  Country: FR (occurrence: FR)
  Receive Date: 20170103
  Receipt Date: 20170103
  Transmission Date: 20170428
  Serious: Yes (Other)
  Sender: FDA-Public Use
  Company Number: FR-PFIZER INC-2016601965

PATIENT
  Age: 28 Year
  Sex: Female

DRUGS (4)
  1. CIFLOX /00697201/ [Concomitant]
     Active Substance: CIPROFLOXACIN
  2. TERGYNAN /00815201/ [Suspect]
     Active Substance: NEOMYCIN\NYSTATIN\PREDNISOLONE\TERNIDAZOLE
     Indication: VAGINAL INFECTION
     Dosage: UNK, SINGLE
     Route: 067
     Dates: start: 20161126, end: 20161126
  3. EFFEXOR [Suspect]
     Active Substance: VENLAFAXINE HYDROCHLORIDE
     Indication: DEPRESSION
     Dosage: UNK
     Dates: start: 20161120, end: 20161130
  4. BACTRIM [Concomitant]
     Active Substance: SULFAMETHOXAZOLE\TRIMETHOPRIM

REACTIONS (7)
  - Erythema [Unknown]
  - Vasculitis [Unknown]
  - Vascular purpura [Recovered/Resolved]
  - Pyrexia [Unknown]
  - Prurigo [Unknown]
  - Vaginal infection [Unknown]
  - Headache [Unknown]

NARRATIVE: CASE EVENT DATE: 20161121
